FAERS Safety Report 9826730 (Version 1)
Quarter: 2014Q1

REPORT INFORMATION
  Report Type: Spontaneous
  Country: US (occurrence: US)
  Receive Date: 20140117
  Receipt Date: 20140117
  Transmission Date: 20141002
  Serious: No
  Sender: FDA-Public Use
  Company Number: US-BIOGENIDEC-2014BI001643

PATIENT
  Age: 47 Year
  Sex: Female

DRUGS (5)
  1. TECFIDERA [Suspect]
     Indication: MULTIPLE SCLEROSIS
     Route: 048
     Dates: start: 201310
  2. VITAMIN D [Concomitant]
  3. LEVOTHYROXINE [Concomitant]
  4. ASPIRIN [Concomitant]
  5. VITAMIN D3 [Concomitant]

REACTIONS (2)
  - Cough [Unknown]
  - Oropharyngeal pain [Unknown]
